FAERS Safety Report 6618280-0 (Version None)
Quarter: 2010Q1

REPORT INFORMATION
  Report Type: 
  Country: None (occurrence: None)
  Receive Date: 20100308
  Receipt Date: 20100302
  Transmission Date: 20100710
  Serious: Yes (Life-Threatening)
  Sender: FDA-Public Use
  Company Number: CN-JNJFOC-20100301183

PATIENT
  Age: 37 Year
  Sex: Male

DRUGS (3)
  1. SPORANOX [Suspect]
     Indication: LUNG INFECTION
     Route: 042
  2. VINCRISTINE [Interacting]
     Indication: ACUTE LYMPHOCYTIC LEUKAEMIA
     Route: 065
  3. ALL OTHER THERAPEUTIC PRODUCTS [Concomitant]
     Indication: ACUTE LYMPHOCYTIC LEUKAEMIA
     Route: 065

REACTIONS (7)
  - ABDOMINAL DISTENSION [None]
  - ALTERED STATE OF CONSCIOUSNESS [None]
  - COMA [None]
  - DRUG INTERACTION [None]
  - NEUROTOXICITY [None]
  - NYSTAGMUS [None]
  - PAIN IN EXTREMITY [None]
